FAERS Safety Report 11208061 (Version 1)
Quarter: 2015Q2

REPORT INFORMATION
  Report Type: Spontaneous
  Country: US (occurrence: None)
  Receive Date: 20150619
  Receipt Date: 20150619
  Transmission Date: 20150821
  Serious: Yes (Hospitalization, Other)
  Sender: FDA-Public Use
  Company Number: ADR-2015-01154

PATIENT
  Sex: Female

DRUGS (3)
  1. BACLOFEN INTRATHECAL [Suspect]
     Active Substance: BACLOFEN
     Indication: PAIN
     Dosage: 0.20018 MG/DAY
  2. CLONIDINE. [Suspect]
     Active Substance: CLONIDINE
  3. FENTANYL INTRATHECAL [Suspect]
     Active Substance: FENTANYL
     Dosage: 150.14 MCG/DAY

REACTIONS (7)
  - Blood pressure decreased [None]
  - Underdose [None]
  - Muscular weakness [None]
  - Overdose [None]
  - Device failure [None]
  - Dysstasia [None]
  - Movement disorder [None]
